FAERS Safety Report 6174431-6 (Version None)
Quarter: 2009Q2

REPORT INFORMATION
  Report Type: 
  Country: None (occurrence: None)
  Receive Date: 20090430
  Receipt Date: 20080602
  Transmission Date: 20091009
  Serious: No
  Sender: FDA-Public Use
  Company Number: US-ASTRAZENECA-2008UW11219

PATIENT
  Age: 23 Year
  Sex: Female

DRUGS (1)
  1. NEXIUM [Suspect]
     Dosage: 40 MG
     Route: 048

REACTIONS (1)
  - ERYTHEMA NODOSUM [None]
